FAERS Safety Report 12093718 (Version 2)
Quarter: 2016Q1

REPORT INFORMATION
  Report Type: Spontaneous
  Country: US (occurrence: US)
  Receive Date: 20160219
  Receipt Date: 20160222
  Transmission Date: 20160526
  Serious: Yes (Other)
  Sender: FDA-Public Use
  Company Number: US-PFIZER INC-2016088123

PATIENT
  Age: 63 Year
  Sex: Male
  Weight: 83.91 kg

DRUGS (4)
  1. GABAPENTIN. [Suspect]
     Active Substance: GABAPENTIN
     Dosage: 1 DF, WEEKLY
     Route: 048
  2. ALEVE [Concomitant]
     Active Substance: NAPROXEN SODIUM
     Dosage: UNK
     Dates: start: 201512
  3. GABAPENTIN. [Suspect]
     Active Substance: GABAPENTIN
     Indication: SCIATICA
     Dosage: 300 MG, 3X/DAY
     Route: 048
     Dates: start: 20151231
  4. RESTASIS [Concomitant]
     Active Substance: CYCLOSPORINE
     Indication: DRY EYE
     Dosage: 0.4 ML
     Dates: start: 2010

REACTIONS (6)
  - Convulsions local [Not Recovered/Not Resolved]
  - Muscle twitching [Not Recovered/Not Resolved]
  - Product use issue [Unknown]
  - Paraesthesia [Recovering/Resolving]
  - Muscle spasms [Not Recovered/Not Resolved]
  - Hypoaesthesia [Not Recovered/Not Resolved]

NARRATIVE: CASE EVENT DATE: 20151231
